FAERS Safety Report 19190285 (Version 1)
Quarter: 2021Q2

REPORT INFORMATION
  Report Type: Spontaneous
  Country: ES (occurrence: ES)
  Receive Date: 20210428
  Receipt Date: 20210428
  Transmission Date: 20210717
  Serious: Yes (Other)
  Sender: FDA-Public Use
  Company Number: ES-TEVA-2021-ES-1904987

PATIENT
  Age: 96 Year
  Sex: Female

DRUGS (2)
  1. ENALAPRIL (2142A) [Suspect]
     Active Substance: ENALAPRIL
     Dosage: 20 MG
     Route: 048
     Dates: start: 20210407, end: 20210407
  2. BISOPROLOL (2328A) [Interacting]
     Active Substance: BISOPROLOL
     Dosage: 5 MG
     Route: 048
     Dates: start: 20210407, end: 20210407

REACTIONS (4)
  - Bradycardia [Recovered/Resolved]
  - Wrong patient received product [Recovered/Resolved]
  - Hypotension [Recovered/Resolved]
  - Drug interaction [Unknown]

NARRATIVE: CASE EVENT DATE: 20210407
